FAERS Safety Report 19083016 (Version 2)
Quarter: 2021Q2

REPORT INFORMATION
  Report Type: Spontaneous
  Country: US (occurrence: US)
  Receive Date: 20210401
  Receipt Date: 20210503
  Transmission Date: 20210717
  Serious: Yes (Hospitalization, Other)
  Sender: FDA-Public Use
  Company Number: US-MYLANLABS-2021M1018975

PATIENT
  Age: 85 Year
  Sex: Female
  Weight: 44.5 kg

DRUGS (9)
  1. AMIODARONE [Interacting]
     Active Substance: AMIODARONE
     Indication: ATRIAL FIBRILLATION
  2. TAFAMIDIS [Interacting]
     Active Substance: TAFAMIDIS MEGLUMINE
     Indication: AMYLOIDOSIS SENILE
     Dosage: 61 MILLIGRAM, QD
     Route: 048
     Dates: start: 20190111, end: 20191126
  3. TAFAMIDIS [Interacting]
     Active Substance: TAFAMIDIS MEGLUMINE
     Indication: CARDIOMYOPATHY
  4. APIXABAN [Concomitant]
     Active Substance: APIXABAN
     Indication: CORONARY ARTERY DISEASE
     Dosage: 2.5 MILLIGRAM, BID
     Route: 065
  5. AMIODARONE [Interacting]
     Active Substance: AMIODARONE
     Indication: CORONARY ARTERY DISEASE
     Dosage: 200 MILLIGRAM, QD
     Route: 048
     Dates: start: 201909, end: 20191126
  6. TORSEMIDE. [Concomitant]
     Active Substance: TORSEMIDE
     Indication: CORONARY ARTERY DISEASE
     Dosage: 20 MILLIGRAM, QD
     Route: 065
  7. TAFAMIDIS [Interacting]
     Active Substance: TAFAMIDIS MEGLUMINE
     Indication: CARDIAC AMYLOIDOSIS
  8. ATORVASTATIN [Suspect]
     Active Substance: ATORVASTATIN
     Indication: CORONARY ARTERY DISEASE
     Dosage: 80 MILLIGRAM, QD
     Route: 048
     Dates: start: 2014, end: 20191126
  9. ATORVASTATIN [Interacting]
     Active Substance: ATORVASTATIN
     Indication: PROPHYLAXIS

REACTIONS (6)
  - Rhabdomyolysis [Recovering/Resolving]
  - Tubulointerstitial nephritis [Unknown]
  - Gait disturbance [Recovering/Resolving]
  - Congestive hepatopathy [Recovering/Resolving]
  - Fall [Unknown]
  - Drug interaction [Recovering/Resolving]
